FAERS Safety Report 19026674 (Version 2)
Quarter: 2021Q2

REPORT INFORMATION
  Report Type: Report from Study
  Country: US (occurrence: US)
  Receive Date: 20210318
  Receipt Date: 20210407
  Transmission Date: 20210717
  Serious: Yes (Hospitalization)
  Sender: FDA-Public Use
  Company Number: US-SECURA BIO, INC.-2020US009040

PATIENT

DRUGS (2)
  1. ROMIDEPSIN. [Suspect]
     Active Substance: ROMIDEPSIN
     Indication: T-CELL LYMPHOMA
     Dosage: 10 MG/M2, 3 TO 4 WEEKS
     Route: 042
     Dates: start: 20200427, end: 20200622
  2. IPI?145 [Suspect]
     Active Substance: DUVELISIB
     Indication: T-CELL LYMPHOMA
     Dosage: 75 MG, BID
     Route: 048
     Dates: start: 20200427, end: 20200625

REACTIONS (1)
  - Sinusitis aspergillus [Recovered/Resolved]

NARRATIVE: CASE EVENT DATE: 20200705
